FAERS Safety Report 8135851-3 (Version None)
Quarter: 2012Q1

REPORT INFORMATION
  Report Type: 
  Country: None (occurrence: None)
  Receive Date: 20120214
  Receipt Date: 20120209
  Transmission Date: 20120608
  Serious: Yes (Hospitalization)
  Sender: FDA-Public Use
  Company Number: US-GLAXOSMITHKLINE-A0965264A

PATIENT
  Age: 55 Year
  Sex: Female

DRUGS (5)
  1. NORVASC [Concomitant]
  2. XOPENEX [Concomitant]
     Route: 055
  3. BONIVA [Concomitant]
     Indication: BONE DENSITY DECREASED
  4. XOPENEX [Concomitant]
     Route: 055
  5. ADVAIR DISKUS 100/50 [Suspect]
     Indication: CHRONIC OBSTRUCTIVE PULMONARY DISEASE
     Dosage: 1PUFF TWICE PER DAY
     Route: 055
     Dates: start: 20080301

REACTIONS (6)
  - GLAUCOMA [None]
  - NASOPHARYNGITIS [None]
  - SINUSITIS [None]
  - CATARACT [None]
  - BODY HEIGHT DECREASED [None]
  - UPPER RESPIRATORY TRACT INFECTION [None]
